FAERS Safety Report 7118695-0 (Version None)
Quarter: 2010Q4

REPORT INFORMATION
  Report Type: 
  Country: None (occurrence: None)
  Receive Date: 20101123
  Receipt Date: 20101108
  Transmission Date: 20110411
  Serious: No
  Sender: FDA-Public Use
  Company Number: US-PFIZER INC-2010146756

PATIENT
  Sex: Female
  Weight: 99.79 kg

DRUGS (8)
  1. PRISTIQ [Suspect]
     Indication: DEPRESSION
     Dosage: 25 MG, UNK
     Route: 048
     Dates: start: 20101105, end: 20101107
  2. ATACAND [Concomitant]
     Indication: HYPERTENSION
     Dosage: 8MG 2X/DAY,
  3. LANTUS [Concomitant]
     Indication: TYPE 2 DIABETES MELLITUS
     Dosage: FREQUENCY: 2X/DAY,
  4. HUMALOG [Concomitant]
     Indication: TYPE 2 DIABETES MELLITUS
     Dosage: FREQUENCY: AS NEEDED,
  5. ACIPHEX [Concomitant]
     Dosage: UNK
  6. ALLEGRA [Concomitant]
     Indication: HYPERSENSITIVITY
     Dosage: FREQUENCY: AS NEEDED,
  7. POTASSIUM [Concomitant]
     Dosage: UNK
  8. HYDROCHLOROTHIAZIDE [Concomitant]
     Indication: HYPERTENSION
     Dosage: UNK

REACTIONS (3)
  - DECREASED APPETITE [None]
  - DIARRHOEA [None]
  - NAUSEA [None]
